FAERS Safety Report 7339281-3 (Version None)
Quarter: 2011Q1

REPORT INFORMATION
  Report Type: 
  Country: None (occurrence: None)
  Receive Date: 20110308
  Receipt Date: 20110302
  Transmission Date: 20110831
  Serious: Yes (Hospitalization, Other)
  Sender: FDA-Public Use
  Company Number: US-ROXANE LABORATORIES, INC.-2011-RO-00241RO

PATIENT
  Age: 46 Year
  Sex: Female

DRUGS (10)
  1. FLUCONAZOLE [Suspect]
  2. GABAPENTIN [Suspect]
  3. FAMOTIDINE [Suspect]
  4. SULFAMETHOXAZOLE AND TRIMETHOPRIM [Suspect]
  5. AZATHIOPRINE [Suspect]
     Indication: IMMUNOSUPPRESSANT DRUG THERAPY
     Dosage: 50 MG
  6. TACROLIMUS [Suspect]
     Indication: IMMUNOSUPPRESSANT DRUG THERAPY
     Dosage: 2 MG
  7. TACROLIMUS [Suspect]
     Dosage: 4 MG
  8. ZOLPIDEM [Suspect]
  9. ASPIRIN [Suspect]
  10. MYCOPHENOLATE MOFETIL [Suspect]
     Indication: IMMUNOSUPPRESSANT DRUG THERAPY
     Dosage: 1500 MG

REACTIONS (7)
  - IMMUNOSUPPRESSANT DRUG LEVEL INCREASED [None]
  - RENAL FAILURE ACUTE [None]
  - WEIGHT DECREASED [None]
  - DIARRHOEA [None]
  - DRUG LEVEL BELOW THERAPEUTIC [None]
  - TUBULOINTERSTITIAL NEPHRITIS [None]
  - GRAFT COMPLICATION [None]
